FAERS Safety Report 23982995 (Version 2)
Quarter: 2024Q3

REPORT INFORMATION
  Report Type: Spontaneous
  Country: US (occurrence: US)
  Receive Date: 20240617
  Receipt Date: 20240709
  Transmission Date: 20241016
  Serious: No
  Sender: CALLIDITAS THERAPEUTICS
  Company Number: US-Calliditas-2024CAL01009

PATIENT
  Age: 26 Year
  Sex: Male
  Weight: 95 kg

DRUGS (1)
  1. TARPEYO [Suspect]
     Active Substance: BUDESONIDE
     Indication: IgA nephropathy
     Route: 048
     Dates: start: 20240426

REACTIONS (4)
  - Fatigue [Unknown]
  - Acne [Unknown]
  - Weight increased [Unknown]
  - Anxiety [Unknown]
